FAERS Safety Report 22140312 (Version 3)
Quarter: 2023Q2

REPORT INFORMATION
  Report Type: Report from Study
  Country: IN (occurrence: IN)
  Receive Date: 20230327
  Receipt Date: 20230630
  Transmission Date: 20230722
  Serious: Yes (Hospitalization, Other)
  Sender: FDA-Public Use
  Company Number: IN-002147023-NVSC2022IN023357

PATIENT
  Age: 43 Year
  Sex: Female

DRUGS (5)
  1. RIBOCICLIB [Suspect]
     Active Substance: RIBOCICLIB
     Indication: Breast cancer metastatic
     Dosage: 600 MG, QD
     Route: 048
     Dates: start: 20210216
  2. RIBOCICLIB [Suspect]
     Active Substance: RIBOCICLIB
     Dosage: 600 MG, QD
     Route: 048
     Dates: start: 20210304
  3. RIBOCICLIB [Suspect]
     Active Substance: RIBOCICLIB
     Dosage: 600 MG, QD
     Route: 048
     Dates: start: 202208
  4. RIBOCICLIB [Suspect]
     Active Substance: RIBOCICLIB
     Dosage: 600 MG, QD
     Route: 048
     Dates: start: 20230214
  5. RIBOCICLIB [Suspect]
     Active Substance: RIBOCICLIB
     Dosage: 600 MG, QD
     Route: 048
     Dates: start: 20230318

REACTIONS (12)
  - Nephrolithiasis [Recovering/Resolving]
  - Type 2 diabetes mellitus [Unknown]
  - Axillary pain [Recovered/Resolved]
  - Anal fissure [Recovered/Resolved]
  - Pain [Recovering/Resolving]
  - Blood glucose increased [Unknown]
  - Rash [Recovered/Resolved]
  - Arthralgia [Recovering/Resolving]
  - Hyperglycaemia [Unknown]
  - Hot flush [Unknown]
  - Hyperhidrosis [Unknown]
  - Bone lesion [Unknown]

NARRATIVE: CASE EVENT DATE: 20210901
